FAERS Safety Report 7385532-9 (Version None)
Quarter: 2011Q1

REPORT INFORMATION
  Report Type: 
  Country: None (occurrence: None)
  Receive Date: 20110331
  Receipt Date: 20110322
  Transmission Date: 20110831
  Serious: Yes (Hospitalization)
  Sender: FDA-Public Use
  Company Number: US-BIOGENIDEC-2011BI010913

PATIENT
  Age: 44 Year
  Sex: Female
  Weight: 127 kg

DRUGS (13)
  1. LANTUS [Concomitant]
     Indication: DIABETES MELLITUS
  2. ALBUTEROL [Concomitant]
     Indication: ASTHMA
  3. VITAMIN D [Concomitant]
  4. PROVIGIL [Concomitant]
     Indication: FATIGUE
  5. TYSABRI [Suspect]
     Indication: MULTIPLE SCLEROSIS
     Route: 042
     Dates: start: 20080414
  6. LEVOTHYROXINE SODIUM [Concomitant]
  7. OMEPRAZOLE [Concomitant]
     Indication: GASTROOESOPHAGEAL REFLUX DISEASE
  8. ZOCOR [Concomitant]
     Indication: HYPERCHOLESTEROLAEMIA
  9. ASPIRIN [Concomitant]
  10. GLIMEPIRIDE [Concomitant]
     Indication: DIABETES MELLITUS
  11. ZYRTEC [Concomitant]
  12. METOPROLOL TARTRATE [Concomitant]
  13. PROTONIX [Concomitant]

REACTIONS (1)
  - CORONARY ARTERY OCCLUSION [None]
